FAERS Safety Report 5794933-1 (Version None)
Quarter: 2008Q2

REPORT INFORMATION
  Report Type: 
  Country: None (occurrence: None)
  Receive Date: 20080627
  Receipt Date: 20080627
  Transmission Date: 20081010
  Serious: Yes (Other)
  Sender: FDA-Public Use
  Company Number: None

PATIENT
  Sex: Female
  Weight: 61.2356 kg

DRUGS (1)
  1. BONIVA [Suspect]
     Indication: OSTEOPENIA
     Dosage: ONCE A MONTH PO
     Route: 048
     Dates: start: 20080501, end: 20080501

REACTIONS (7)
  - BLOOD PRESSURE INCREASED [None]
  - DIARRHOEA [None]
  - DYSPEPSIA [None]
  - GAIT DISTURBANCE [None]
  - INSOMNIA [None]
  - PAIN [None]
  - PALPITATIONS [None]
